FAERS Safety Report 19050866 (Version 1)
Quarter: 2021Q1

REPORT INFORMATION
  Report Type: Spontaneous
  Country: US (occurrence: US)
  Receive Date: 20210324
  Receipt Date: 20210324
  Transmission Date: 20210420
  Serious: No
  Sender: FDA-Public Use
  Company Number: US-AMGEN-USASP2021044601

PATIENT
  Age: 66 Year
  Sex: Male

DRUGS (2)
  1. REVLIMID [Concomitant]
     Active Substance: LENALIDOMIDE
     Indication: PLASMA CELL MYELOMA
     Dosage: UNK
  2. KYPROLIS [Suspect]
     Active Substance: CARFILZOMIB
     Indication: PLASMA CELL MYELOMA
     Dosage: 57.3 MILLIGRAM/SQ. METER DAY 1, DAY 8 AND THEN DOSE EVERY FOUR WEEKS.
     Route: 042
     Dates: start: 20210113

REACTIONS (1)
  - Blood pressure increased [Not Recovered/Not Resolved]

NARRATIVE: CASE EVENT DATE: 20210317
